FAERS Safety Report 17499445 (Version 1)
Quarter: 2020Q1

REPORT INFORMATION
  Report Type: Report from Study
  Country: CA (occurrence: CA)
  Receive Date: 20200305
  Receipt Date: 20200305
  Transmission Date: 20200409
  Serious: Yes (Other)
  Sender: FDA-Public Use
  Company Number: CA-ORION CORPORATION ORION PHARMA-TREX2020-1194

PATIENT
  Sex: Male

DRUGS (9)
  1. METHOTREXATE (TRADE NAME UNKNOWN) [Suspect]
     Active Substance: METHOTREXATE
     Indication: PRODUCT USED FOR UNKNOWN INDICATION
     Route: 065
  2. DOVONEX [Concomitant]
     Active Substance: CALCIPOTRIENE
     Route: 065
  3. BETAMETHASONE DIPROPIONATE;SALICYLIC ACID [Concomitant]
     Route: 065
  4. METHOTREXATE (TRADE NAME UNKNOWN) [Suspect]
     Active Substance: METHOTREXATE
     Route: 065
  5. OTEZLA [Concomitant]
     Active Substance: APREMILAST
     Route: 065
  6. ACITRETIN. [Concomitant]
     Active Substance: ACITRETIN
     Route: 065
  7. SORIATANE [Concomitant]
     Active Substance: ACITRETIN
     Route: 065
  8. PROTOPIC [Concomitant]
     Active Substance: TACROLIMUS
     Route: 061
  9. CICLOSPORIN [Suspect]
     Active Substance: CYCLOSPORINE
     Indication: PRODUCT USED FOR UNKNOWN INDICATION
     Route: 065

REACTIONS (5)
  - Neoplasm malignant [Unknown]
  - Skin plaque [Unknown]
  - Psoriatic arthropathy [Unknown]
  - Drug ineffective [Unknown]
  - Diarrhoea [Unknown]
